FAERS Safety Report 26058582 (Version 1)
Quarter: 2025Q4

REPORT INFORMATION
  Report Type: Spontaneous
  Country: GB (occurrence: GB)
  Receive Date: 20251118
  Receipt Date: 20251118
  Transmission Date: 20260117
  Serious: Yes (Other)
  Sender: AUROBINDO
  Company Number: GB-MHRA-MED-202511052301314970-RLYJB

PATIENT
  Sex: Male
  Weight: 12 kg

DRUGS (3)
  1. MONTELUKAST [Suspect]
     Active Substance: MONTELUKAST
     Indication: Adverse drug reaction
     Dosage: UNK (4MG ONCE A DAY AT NIGHT BUT WE HAVE REDUCED TO 2MG)
     Route: 065
  2. VENTOLIN [Concomitant]
     Active Substance: ALBUTEROL SULFATE
     Indication: Adverse drug reaction
     Dosage: UNK
     Route: 065
  3. BECLOMETHASONE DIPROPIONATE [Concomitant]
     Active Substance: BECLOMETHASONE DIPROPIONATE
     Indication: Adverse drug reaction
     Dosage: UNK
     Route: 065

REACTIONS (5)
  - Psychomotor hyperactivity [Not Recovered/Not Resolved]
  - Aggression [Not Recovered/Not Resolved]
  - Agitation [Not Recovered/Not Resolved]
  - Anxiety [Not Recovered/Not Resolved]
  - Sleep terror [Not Recovered/Not Resolved]

NARRATIVE: CASE EVENT DATE: 20250918
